FAERS Safety Report 6388014-6 (Version None)
Quarter: 2009Q4

REPORT INFORMATION
  Report Type: 
  Country: None (occurrence: None)
  Receive Date: 20091005
  Receipt Date: 20090921
  Transmission Date: 20100525
  Serious: Yes (Congenital Anomaly)
  Sender: FDA-Public Use
  Company Number: SA-MYLANLABS-2009S1016516

PATIENT
  Sex: Female
  Weight: 4 kg

DRUGS (1)
  1. FINASTERIDE [Suspect]
     Indication: ANDROGENETIC ALOPECIA
     Route: 064

REACTIONS (1)
  - PHALANGEAL AGENESIS [None]
